FAERS Safety Report 8828112 (Version 1)
Quarter: 2012Q4

REPORT INFORMATION
  Report Type: 
  Country: JP (occurrence: JP)
  Receive Date: 20121008
  Receipt Date: 20121008
  Transmission Date: 20130627
  Serious: Yes (Other)
  Sender: FDA-Public Use
  Company Number: PHHY2012JP086957

PATIENT
  Age: 68 Year

DRUGS (1)
  1. TEGRETOL [Suspect]
     Route: 048
     Dates: end: 20120830

REACTIONS (1)
  - Loss of consciousness [Recovered/Resolved]
